FAERS Safety Report 20048781 (Version 1)
Quarter: 2021Q4

REPORT INFORMATION
  Report Type: Spontaneous
  Country: DE (occurrence: DE)
  Receive Date: 20211109
  Receipt Date: 20211109
  Transmission Date: 20220304
  Serious: Yes (Other)
  Sender: FDA-Public Use
  Company Number: DE-PFIZER INC-202101485831

PATIENT
  Age: 75 Year
  Sex: Male

DRUGS (11)
  1. VYNDAQEL [Suspect]
     Active Substance: TAFAMIDIS MEGLUMINE
     Indication: Amyloidosis senile
     Dosage: 61 MG, 1X/DAY
     Dates: start: 20201128
  2. TORASEMIDE [TORASEMIDE SODIUM] [Concomitant]
  3. BISOPROLOL [Concomitant]
     Active Substance: BISOPROLOL
     Dosage: 2.5 MG, 1X/DAY
  4. FUROSEMIDE [Concomitant]
     Active Substance: FUROSEMIDE
     Indication: Oedema
     Dosage: 1 DF, 2X/DAY
  5. FLOTRIN URO [Concomitant]
     Dosage: 5 MG, 1X/DAY
  6. PANTOPRAZOLE SODIUM [Concomitant]
     Active Substance: PANTOPRAZOLE SODIUM
     Dosage: 40 MG, 1X/DAY
  7. SIMVASTATIN [Concomitant]
     Active Substance: SIMVASTATIN
     Dosage: 20 MG, 1X/DAY
  8. XARELTO [Concomitant]
     Active Substance: RIVAROXABAN
     Dosage: 15 MG, 1X/DAY
  9. CHOLECALCIFEROL [Concomitant]
     Active Substance: CHOLECALCIFEROL
     Dosage: 1000 IU, 1X/DAY
  10. EPLERENONE [Concomitant]
     Active Substance: EPLERENONE
     Dosage: 2 DF, 2X/DAY
     Dates: start: 202008
  11. ALLOBETA [Concomitant]
     Dosage: 1 DF, 1X/DAY

REACTIONS (2)
  - Prostate cancer [Unknown]
  - N-terminal prohormone brain natriuretic peptide increased [Unknown]
